FAERS Safety Report 7842187-4 (Version None)
Quarter: 2011Q4

REPORT INFORMATION
  Report Type: 
  Country: None (occurrence: None)
  Receive Date: 20111024
  Receipt Date: 20111024
  Transmission Date: 20120403
  Serious: Yes (Life-Threatening, Hospitalization)
  Sender: FDA-Public Use
  Company Number: None

PATIENT
  Age: 69 Year
  Sex: Female
  Weight: 62.5964 kg

DRUGS (1)
  1. VOLTAREN [Suspect]
     Indication: TENDONITIS
     Dosage: 1% PER GRAM 4 GRAM 4 X DAY
     Dates: start: 20110822, end: 20110823

REACTIONS (3)
  - URTICARIA [None]
  - MYOCARDIAL INFARCTION [None]
  - HYPERTENSION [None]
